FAERS Safety Report 13795035 (Version 3)
Quarter: 2017Q3

REPORT INFORMATION
  Report Type: Report from Study
  Country: PH (occurrence: PH)
  Receive Date: 20170726
  Receipt Date: 20170913
  Transmission Date: 20171127
  Serious: Yes (Hospitalization, Other)
  Sender: FDA-Public Use
  Company Number: PHHO2016PH012082

PATIENT
  Age: 36 Year
  Sex: Male
  Weight: 40 kg

DRUGS (6)
  1. NEORAL [Suspect]
     Active Substance: CYCLOSPORINE
     Dosage: 25 MG, BID
     Route: 065
  2. EVEROLIMUS [Suspect]
     Active Substance: EVEROLIMUS
     Indication: RENAL TRANSPLANT
     Dosage: 0.50 MG, BID
     Route: 048
     Dates: start: 20150914
  3. MYFORTIC [Concomitant]
     Active Substance: MYCOPHENOLATE SODIUM
     Indication: RENAL TRANSPLANT
     Dosage: 1080 MG, QD (720 MG AM+360 MG PM)
     Route: 048
     Dates: start: 20161111, end: 20161111
  4. EVEROLIMUS [Suspect]
     Active Substance: EVEROLIMUS
     Dosage: 0.25 MG, BID
     Route: 048
  5. NEORAL [Suspect]
     Active Substance: CYCLOSPORINE
     Indication: RENAL TRANSPLANT
     Dosage: 50 MG, BID
     Route: 065
     Dates: start: 20150913
  6. PREDNISONE. [Suspect]
     Active Substance: PREDNISONE
     Indication: RENAL TRANSPLANT
     Dosage: 5 MG, UNK
     Route: 048
     Dates: start: 20150920

REACTIONS (8)
  - Bladder squamous cell carcinoma stage I [Recovered/Resolved]
  - Escherichia urinary tract infection [Recovered/Resolved]
  - Squamous cell carcinoma [Not Recovered/Not Resolved]
  - Escherichia urinary tract infection [Recovered/Resolved]
  - Bladder squamous cell carcinoma stage unspecified [Not Recovered/Not Resolved]
  - Renal transplant failure [Recovered/Resolved]
  - Metastases to lymph nodes [Not Recovered/Not Resolved]
  - Sepsis [Recovered/Resolved]

NARRATIVE: CASE EVENT DATE: 20160813
